FAERS Safety Report 9869846 (Version 1)
Quarter: 2014Q1

REPORT INFORMATION
  Report Type: Spontaneous
  Country: US (occurrence: None)
  Receive Date: 20140203
  Receipt Date: 20140203
  Transmission Date: 20141002
  Serious: No
  Sender: FDA-Public Use
  Company Number: None

PATIENT
  Age: 70 Year
  Sex: Male
  Weight: 81.8 kg

DRUGS (1)
  1. SUNITINIB [Suspect]
     Indication: METASTATIC RENAL CELL CARCINOMA
     Route: 048
     Dates: start: 20131118, end: 20131210

REACTIONS (3)
  - Thrombocytopenia [None]
  - Dermatitis [None]
  - Palmar-plantar erythrodysaesthesia syndrome [None]
